FAERS Safety Report 14618726 (Version 4)
Quarter: 2018Q2

REPORT INFORMATION
  Report Type: Spontaneous
  Country: CA (occurrence: CA)
  Receive Date: 20180309
  Receipt Date: 20180611
  Transmission Date: 20180711
  Serious: Yes (Hospitalization, Other)
  Sender: FDA-Public Use
  Company Number: CA-REGENERON PHARMACEUTICALS, INC.-2018-16967

PATIENT

DRUGS (2)
  1. EYLEA [Suspect]
     Active Substance: AFLIBERCEPT
     Indication: DIABETIC RETINAL OEDEMA
     Dosage: UNK, RECEIVED A TOTAL OF 3 INJECTIONS
  2. EYLEA [Suspect]
     Active Substance: AFLIBERCEPT
     Dosage: UNK, ONCE IN HIS GOOD EYE (LAST INJECTION PRIOR TO THE EVENT RETINITIS)
     Dates: start: 201802, end: 201802

REACTIONS (6)
  - Drug specific antibody present [Unknown]
  - Uveitis [Unknown]
  - Endophthalmitis [Unknown]
  - Visual impairment [Unknown]
  - Blindness [Unknown]
  - Retinitis [Unknown]

NARRATIVE: CASE EVENT DATE: 201802
